FAERS Safety Report 21393988 (Version 1)
Quarter: 2022Q3

REPORT INFORMATION
  Report Type: Spontaneous
  Country: IN (occurrence: IN)
  Receive Date: 20220930
  Receipt Date: 20220930
  Transmission Date: 20221027
  Serious: Yes (Death, Other)
  Sender: FDA-Public Use
  Company Number: IN-Shilpa Medicare Limited-SML-IN-2022-01199

PATIENT
  Age: 60 Year
  Sex: Female

DRUGS (2)
  1. CAPECITABINE [Suspect]
     Active Substance: CAPECITABINE
     Indication: Breast cancer metastatic
     Dosage: DAILY IN TWO DIVIDED DOSES.
  2. CAPECITABINE [Suspect]
     Active Substance: CAPECITABINE
     Dosage: TWO TIMES PER DAY FOR 14 DAYS IN A 3WEEKLY CYCLE

REACTIONS (7)
  - Disease progression [Fatal]
  - General physical health deterioration [Unknown]
  - Vomiting [Unknown]
  - Headache [Unknown]
  - Seizure [Unknown]
  - Metastases to central nervous system [Unknown]
  - Metastases to lymph nodes [Unknown]
